FAERS Safety Report 11603547 (Version 1)
Quarter: 2015Q4

REPORT INFORMATION
  Report Type: Spontaneous
  Country: None (occurrence: None)
  Receive Date: 20151006
  Receipt Date: 20151006
  Transmission Date: 20160304
  Serious: Yes (Other)
  Sender: FDA-Public Use
  Company Number: None

PATIENT
  Age: 62 Year
  Sex: Female

DRUGS (1)
  1. LOSARTAN 50MG VIRTUS [Suspect]
     Active Substance: LOSARTAN
     Indication: HYPERTENSION
     Route: 048
     Dates: start: 20150917, end: 20151005

REACTIONS (3)
  - Drug ineffective [None]
  - Blood pressure increased [None]
  - Product quality issue [None]

NARRATIVE: CASE EVENT DATE: 20151005
